APPROVED DRUG PRODUCT: FLUDEOXYGLUCOSE F18
Active Ingredient: FLUDEOXYGLUCOSE F-18
Strength: 4-40mCi/ML
Dosage Form/Route: INJECTABLE;INTRAVENOUS
Application: A204759 | Product #001 | TE Code: AP
Applicant: KETTERING MEDCTR
Approved: Oct 27, 2015 | RLD: No | RS: No | Type: RX